FAERS Safety Report 22179371 (Version 1)
Quarter: 2023Q2

REPORT INFORMATION
  Report Type: Spontaneous
  Country: DE (occurrence: DE)
  Receive Date: 20230406
  Receipt Date: 20230406
  Transmission Date: 20230722
  Serious: No
  Sender: FDA-Public Use
  Company Number: DE-ALKEM LABORATORIES LIMITED-DE-ALKEM-2023-00267

PATIENT
  Sex: Female

DRUGS (3)
  1. IBUPROFEN [Suspect]
     Active Substance: IBUPROFEN
     Indication: Product used for unknown indication
     Dosage: UNK (IBUFLAM)
     Route: 065
  2. IBUPROFEN [Suspect]
     Active Substance: IBUPROFEN
     Dosage: UNK (NUROFEN 200 MG SCHMELZTABLETTEN LEMON) (ORODISPERSIBLE TABLET)
     Route: 065
  3. IBUPROFEN [Suspect]
     Active Substance: IBUPROFEN
     Dosage: UNK (NUROFEN JUNIOR FIEBER-UND SCHMERZSAFT ORANGE 40 MG/ML SUSPENSION ZUM EINNEHMEN) (ORAL SUSPENSIO
     Route: 065

REACTIONS (1)
  - Vomiting [Not Recovered/Not Resolved]
